FAERS Safety Report 13661472 (Version 1)
Quarter: 2017Q2

REPORT INFORMATION
  Report Type: Spontaneous
  Country: US (occurrence: US)
  Receive Date: 20170616
  Receipt Date: 20170616
  Transmission Date: 20170830
  Serious: No
  Sender: FDA-Public Use
  Company Number: US-US WORLDMEDS, LLC-USW201610-000681

PATIENT
  Sex: Male
  Weight: 97.52 kg

DRUGS (7)
  1. DONEPEZIL. [Concomitant]
     Active Substance: DONEPEZIL
  2. TIZANIDINE. [Concomitant]
     Active Substance: TIZANIDINE
  3. CARBIDOPA LEVODOPA [Concomitant]
     Active Substance: CARBIDOPA\LEVODOPA
  4. TRAMIPEXOLE [Concomitant]
  5. APOKYN [Suspect]
     Active Substance: APOMORPHINE HYDROCHLORIDE
     Indication: PARKINSON^S DISEASE
     Route: 058
  6. ESCITALOPRAM [Concomitant]
     Active Substance: ESCITALOPRAM OXALATE
  7. CARBIDOPA LEVODOPA [Concomitant]
     Active Substance: CARBIDOPA\LEVODOPA

REACTIONS (6)
  - Muscle spasticity [Recovered/Resolved]
  - Pain in extremity [Recovered/Resolved]
  - Tardive dyskinesia [Recovered/Resolved]
  - Balance disorder [Recovered/Resolved]
  - Memory impairment [Recovered/Resolved]
  - Chest discomfort [Recovered/Resolved]
